FAERS Safety Report 8426915-5 (Version None)
Quarter: 2012Q2

REPORT INFORMATION
  Report Type: 
  Country: None (occurrence: None)
  Receive Date: 20120531
  Receipt Date: 20120522
  Transmission Date: 20120825
  Serious: Yes (Other)
  Sender: FDA-Public Use
  Company Number: 2012SP018933

PATIENT
  Age: 22 Year
  Sex: Female
  Weight: 72.5755 kg

DRUGS (1)
  1. IMPLANON [Suspect]
     Indication: CONTRACEPTION
     Dosage: 1 DF; SBDE
     Route: 059
     Dates: start: 20120118

REACTIONS (2)
  - CHOLELITHIASIS [None]
  - PANCREATITIS [None]
